FAERS Safety Report 17872041 (Version 2)
Quarter: 2020Q3

REPORT INFORMATION
  Report Type: Report from Study
  Country: US (occurrence: US)
  Receive Date: 20200608
  Receipt Date: 20200722
  Transmission Date: 20201103
  Serious: Yes (Other)
  Sender: FDA-Public Use
  Company Number: US-009507513-2003USA001347

PATIENT

DRUGS (2)
  1. PROVENTIL [Suspect]
     Active Substance: ALBUTEROL
     Indication: STATUS ASTHMATICUS
     Dosage: 0.5 ?20 MG/HR
     Route: 055
  2. METHYLPREDNISOLONE. [Suspect]
     Active Substance: METHYLPREDNISOLONE
     Indication: STATUS ASTHMATICUS
     Dosage: 1 MG TO 60 MG/KG EVERY 6 HOURS
     Route: 042

REACTIONS (3)
  - Pneumomediastinum [Unknown]
  - Pneumothorax [Unknown]
  - Electrocardiogram abnormal [Unknown]
